FAERS Safety Report 25661457 (Version 1)
Quarter: 2025Q3

REPORT INFORMATION
  Report Type: Spontaneous
  Country: EU (occurrence: EU)
  Receive Date: 20250808
  Receipt Date: 20250808
  Transmission Date: 20251021
  Serious: Yes (Other)
  Sender: MYLAN
  Company Number: EU-SAMIL-GLO2025CZ006076

PATIENT
  Age: 60 Year
  Sex: Male

DRUGS (10)
  1. AMLODIPINE [Suspect]
     Active Substance: AMLODIPINE BESYLATE
     Indication: Hypertension
  2. RISEDRONATE SODIUM [Suspect]
     Active Substance: RISEDRONATE SODIUM
     Indication: Osteoporosis
  3. AZATHIOPRINE [Suspect]
     Active Substance: AZATHIOPRINE
     Indication: Immunosuppressant drug therapy
  4. AZATHIOPRINE [Suspect]
     Active Substance: AZATHIOPRINE
     Indication: Crohn^s disease
  5. BUDESONIDE [Suspect]
     Active Substance: BUDESONIDE
     Indication: Crohn^s disease
  6. VITAMIN B12 [Suspect]
     Active Substance: CYANOCOBALAMIN
     Indication: Vitamin B12 deficiency
  7. MENAQUINONE 6 [Suspect]
     Active Substance: MENAQUINONE 6
     Indication: Osteoporosis
  8. CHOLESTYRAMINE [Suspect]
     Active Substance: CHOLESTYRAMINE
     Indication: Dyslipidaemia
  9. CANDESARTAN [Suspect]
     Active Substance: CANDESARTAN
     Indication: Hypertension
  10. VITAMIN D3 [Suspect]
     Active Substance: CHOLECALCIFEROL
     Indication: Osteoporosis

REACTIONS (1)
  - Skin cancer [Unknown]
